FAERS Safety Report 5869356-7 (Version None)
Quarter: 2008Q3

REPORT INFORMATION
  Report Type: 
  Country: None (occurrence: None)
  Receive Date: 20080828
  Receipt Date: 20080820
  Transmission Date: 20090109
  Serious: Yes (Life-Threatening, Hospitalization)
  Sender: FDA-Public Use
  Company Number: 2008SP016596

PATIENT
  Age: 67 Year
  Sex: Male

DRUGS (3)
  1. LORATADINE [Suspect]
     Indication: URTICARIA
     Dosage: 10 MG; QD; PO
     Route: 048
     Dates: start: 20080810, end: 20080810
  2. DEXAMETHASONE [Concomitant]
  3. HERBAL PREPARATION [Concomitant]

REACTIONS (8)
  - BLOOD GLUCOSE INCREASED [None]
  - BLOOD PRESSURE INCREASED [None]
  - DIZZINESS [None]
  - DRY MOUTH [None]
  - PALPITATIONS [None]
  - PYREXIA [None]
  - SELF-MEDICATION [None]
  - WHITE BLOOD CELL COUNT INCREASED [None]
